FAERS Safety Report 8079878-9 (Version None)
Quarter: 2012Q1

REPORT INFORMATION
  Report Type: 
  Country: None (occurrence: None)
  Receive Date: 20120128
  Receipt Date: 20110831
  Transmission Date: 20120608
  Serious: No
  Sender: FDA-Public Use
  Company Number: US-ABBOTT-11P-163-0850857-00

PATIENT
  Sex: Female

DRUGS (1)
  1. HUMIRA [Suspect]
     Indication: RHEUMATOID ARTHRITIS
     Dates: start: 20110301

REACTIONS (6)
  - SINUSITIS [None]
  - DYSPNOEA [None]
  - PARANASAL SINUS HYPERSECRETION [None]
  - PAINFUL RESPIRATION [None]
  - BRONCHITIS [None]
  - COUGH [None]
